FAERS Safety Report 8983774 (Version 6)
Quarter: 2014Q1

REPORT INFORMATION
  Report Type: Report from Study
  Country: BR (occurrence: BR)
  Receive Date: 20121224
  Receipt Date: 20140306
  Transmission Date: 20141002
  Serious: Yes (Hospitalization, Other)
  Sender: FDA-Public Use
  Company Number: BR-ROCHE-1168836

PATIENT
  Sex: Male
  Weight: 97 kg

DRUGS (15)
  1. ACTEMRA [Suspect]
     Indication: RHEUMATOID ARTHRITIS
     Dosage: 10 INFUSION RECEIVED?MOST RECENT DOSE ON 01/DEC/2013
     Route: 042
     Dates: start: 20120101
  2. HUMIRA [Suspect]
     Indication: PRODUCT USED FOR UNKNOWN INDICATION
     Route: 065
  3. ENBREL [Suspect]
     Indication: PRODUCT USED FOR UNKNOWN INDICATION
     Route: 065
  4. PARACETAMOL [Concomitant]
     Route: 065
  5. CODEIN. [Concomitant]
     Route: 065
  6. CORTISONE [Concomitant]
  7. RANITIDINE [Concomitant]
  8. FLUOXETINE [Concomitant]
  9. PURAN T4 [Concomitant]
     Indication: HYPOTHYROIDISM
  10. TRIAMCINOLONE [Concomitant]
  11. DULOXETINE [Concomitant]
  12. AMITRIPTYLINE [Concomitant]
  13. LEXOTAN [Concomitant]
  14. METFORMIN [Concomitant]
     Route: 065
  15. AMLODIPINE [Concomitant]

REACTIONS (14)
  - Arthropathy [Unknown]
  - Arthropathy [Recovered/Resolved]
  - Bladder neoplasm [Recovered/Resolved]
  - Diverticulitis [Not Recovered/Not Resolved]
  - Pharyngeal disorder [Recovered/Resolved]
  - Urinary tract infection [Recovered/Resolved]
  - Infection [Not Recovered/Not Resolved]
  - Urine odour abnormal [Not Recovered/Not Resolved]
  - Arthralgia [Not Recovered/Not Resolved]
  - Feeling of despair [Unknown]
  - Swelling [Unknown]
  - Drug ineffective [Unknown]
  - Pain [Not Recovered/Not Resolved]
  - Rheumatoid arthritis [Not Recovered/Not Resolved]
